FAERS Safety Report 8675705 (Version 2)
Quarter: 2013Q4

REPORT INFORMATION
  Report Type: Spontaneous
  Country: US (occurrence: US)
  Receive Date: 20120720
  Receipt Date: 20131105
  Transmission Date: 20140711
  Serious: Yes (Other)
  Sender: FDA-Public Use
  Company Number: US-009507513-1207USA006447

PATIENT
  Sex: Male

DRUGS (3)
  1. SAPHRIS [Suspect]
     Indication: BIPOLAR DISORDER
     Dosage: 10 MG, UNK
     Route: 060
     Dates: start: 201204, end: 201206
  2. SAPHRIS [Suspect]
     Indication: PSYCHOTIC DISORDER
  3. SAPHRIS [Suspect]
     Indication: ANGER

REACTIONS (2)
  - Homicide [Unknown]
  - Suicide attempt [Unknown]
